FAERS Safety Report 20647832 (Version 1)
Quarter: 2022Q1

REPORT INFORMATION
  Report Type: Spontaneous
  Country: US (occurrence: None)
  Receive Date: 20220328
  Receipt Date: 20220328
  Transmission Date: 20220423
  Serious: Yes (Hospitalization)
  Sender: FDA-Public Use
  Company Number: None

PATIENT
  Age: 19 Year
  Sex: Male

DRUGS (1)
  1. ENVARSUS XR [Suspect]
     Active Substance: TACROLIMUS
     Indication: Renal transplant
     Dosage: TAKE 3 TABLETS (2.25 MG) BY MOUTH ONCE DAILY.
     Route: 048
     Dates: start: 20200123

REACTIONS (1)
  - Kidney infection [None]

NARRATIVE: CASE EVENT DATE: 20220315
